FAERS Safety Report 5379914-4 (Version None)
Quarter: 2007Q3

REPORT INFORMATION
  Report Type: 
  Country: None (occurrence: None)
  Receive Date: 20070703
  Receipt Date: 20070622
  Transmission Date: 20080115
  Serious: Yes (Death)
  Sender: FDA-Public Use
  Company Number: TRP_00970_2007

PATIENT
  Sex: Male
  Weight: 30 kg

DRUGS (7)
  1. AMPHOCIL / AMPHOTERICIN B CHOLESTERYL SULFATE COMPLEX FOR INJECTION [Suspect]
     Dosage: (DOSE UNKNOWN)
  2. NEUPOGEN [Concomitant]
  3. METRONIDAZOLE [Concomitant]
  4. MEROPENEM [Concomitant]
  5. AMBROBENE [Concomitant]
  6. LOSEC /00661201/ [Concomitant]
  7. ALDACTONE [Concomitant]

REACTIONS (3)
  - ACUTE RESPIRATORY DISTRESS SYNDROME [None]
  - BLOOD PRESSURE DECREASED [None]
  - SEPSIS [None]
